FAERS Safety Report 5574761-2 (Version None)
Quarter: 2007Q4

REPORT INFORMATION
  Report Type: 
  Country: None (occurrence: None)
  Receive Date: 20071226
  Receipt Date: 20071226
  Transmission Date: 20080405
  Serious: No
  Sender: FDA-Public Use
  Company Number: None

PATIENT
  Age: 56 Year
  Sex: Male
  Weight: 60 kg

DRUGS (3)
  1. GENTAMICIN [Suspect]
     Indication: PYELONEPHRITIS
     Dosage: 300MG, 360 X1 IV
     Route: 042
     Dates: start: 20071119
  2. GENTAMICIN [Suspect]
     Dosage: 420 MG X1 IV
     Route: 042
     Dates: start: 20071120
  3. GENTAMICIN [Suspect]
     Dosage: 420 MG X1 IV
     Route: 042
     Dates: start: 20071121

REACTIONS (1)
  - DRUG LEVEL BELOW THERAPEUTIC [None]
